FAERS Safety Report 16398576 (Version 3)
Quarter: 2019Q2

REPORT INFORMATION
  Report Type: Report from Study
  Country: JP (occurrence: JP)
  Receive Date: 20190606
  Receipt Date: 20190617
  Transmission Date: 20190711
  Serious: Yes (Death, Hospitalization, Other)
  Sender: FDA-Public Use
  Company Number: JP-CELGENEUS-JPN-20190308728

PATIENT
  Age: 62 Year
  Sex: Female
  Weight: 40.6 kg

DRUGS (24)
  1. VINCRISTINE [Concomitant]
     Active Substance: VINCRISTINE
     Indication: ADULT T-CELL LYMPHOMA/LEUKAEMIA
     Dosage: UNKNOWN
     Route: 041
     Dates: start: 20180919, end: 2018
  2. REVLIMID [Suspect]
     Active Substance: LENALIDOMIDE
     Dosage: 5 MILLIGRAM
     Route: 048
     Dates: start: 20181108, end: 20190113
  3. PREDONINE [Concomitant]
     Active Substance: PREDNISOLONE
     Route: 065
     Dates: start: 20181217, end: 20181231
  4. VINCRISTINE [Concomitant]
     Active Substance: VINCRISTINE
     Route: 041
     Dates: start: 20181016, end: 20181205
  5. PREDONINE [Concomitant]
     Active Substance: PREDNISOLONE
     Dosage: 40 MILLIGRAM
     Route: 048
     Dates: start: 20190130, end: 2019
  6. TACROLIMUS. [Concomitant]
     Active Substance: TACROLIMUS
     Indication: PROPHYLAXIS AGAINST GRAFT VERSUS HOST DISEASE
     Dosage: 0.4-1.0 MG
     Route: 065
     Dates: start: 20180523, end: 20180918
  7. CYCLOPHOSPHAMIDE. [Concomitant]
     Active Substance: CYCLOPHOSPHAMIDE
     Indication: ADULT T-CELL LYMPHOMA/LEUKAEMIA
     Dosage: UNKNOWN
     Route: 065
     Dates: start: 20180919
  8. PREDONINE [Concomitant]
     Active Substance: PREDNISOLONE
     Route: 065
     Dates: start: 20181209, end: 20181214
  9. PREDONINE [Concomitant]
     Active Substance: PREDNISOLONE
     Route: 065
     Dates: start: 20181120, end: 201811
  10. ENDOXAN [Concomitant]
     Active Substance: CYCLOPHOSPHAMIDE
     Indication: ADULT T-CELL LYMPHOMA/LEUKAEMIA
     Route: 041
     Dates: start: 20181016, end: 20181205
  11. PREDONINE [Concomitant]
     Active Substance: PREDNISOLONE
     Route: 065
     Dates: start: 20181113, end: 201811
  12. PREDONINE [Concomitant]
     Active Substance: PREDNISOLONE
     Dosage: 15 MILLIGRAM
     Route: 048
     Dates: start: 20190220, end: 201902
  13. REVLIMID [Suspect]
     Active Substance: LENALIDOMIDE
     Indication: ADULT T-CELL LYMPHOMA/LEUKAEMIA
     Dosage: 25 MILLIGRAM
     Route: 048
     Dates: start: 20180915, end: 20180930
  14. REVLIMID [Suspect]
     Active Substance: LENALIDOMIDE
     Dosage: 10 MILLIGRAM
     Route: 048
     Dates: start: 20181003, end: 20181012
  15. DOXORUBICIN [Concomitant]
     Active Substance: DOXORUBICIN
     Indication: ADULT T-CELL LYMPHOMA/LEUKAEMIA
     Dosage: UNKNOWN
     Route: 041
     Dates: start: 20180919, end: 2018
  16. DOXORUBICIN [Concomitant]
     Active Substance: DOXORUBICIN
     Route: 041
     Dates: start: 20181016, end: 20181205
  17. PREDONINE [Concomitant]
     Active Substance: PREDNISOLONE
     Indication: ADULT T-CELL LYMPHOMA/LEUKAEMIA
     Route: 065
     Dates: start: 20180920, end: 2018
  18. PREDONINE [Concomitant]
     Active Substance: PREDNISOLONE
     Indication: GRAFT VERSUS HOST DISEASE IN LIVER
     Route: 065
     Dates: start: 20181017, end: 201810
  19. PREDONINE [Concomitant]
     Active Substance: PREDNISOLONE
     Route: 065
     Dates: start: 20181127, end: 2018
  20. REVLIMID [Suspect]
     Active Substance: LENALIDOMIDE
     Dosage: 10 MILLIGRAM
     Route: 048
     Dates: start: 20181018, end: 2018
  21. PREDONINE [Concomitant]
     Active Substance: PREDNISOLONE
     Indication: PROPHYLAXIS AGAINST GRAFT VERSUS HOST DISEASE
     Route: 065
     Dates: start: 20181031, end: 201811
  22. PREDONINE [Concomitant]
     Active Substance: PREDNISOLONE
     Dosage: 30 MILLIGRAM
     Route: 048
     Dates: start: 20190206, end: 201902
  23. PREDONINE [Concomitant]
     Active Substance: PREDNISOLONE
     Dosage: 20 MILLIGRAM
     Route: 048
     Dates: start: 20190213, end: 201902
  24. PREDONINE [Concomitant]
     Active Substance: PREDNISOLONE
     Dosage: 10 MILLIGRAM
     Route: 048
     Dates: start: 20190228, end: 20190307

REACTIONS (2)
  - Acute graft versus host disease in liver [Unknown]
  - Graft versus host disease in liver [Fatal]

NARRATIVE: CASE EVENT DATE: 20181012
